FAERS Safety Report 4602980-8 (Version None)
Quarter: 2005Q1

REPORT INFORMATION
  Report Type: 
  Country: None (occurrence: None)
  Receive Date: 20050214
  Receipt Date: 20050103
  Transmission Date: 20050727
  Serious: No
  Sender: FDA-Public Use
  Company Number: USA041286566

PATIENT
  Age: 78 Year
  Sex: Male

DRUGS (3)
  1. CIALIS [Suspect]
     Indication: ERECTILE DYSFUNCTION
     Dosage: 20 MG
     Dates: start: 20041101
  2. ADVIL [Concomitant]
  3. ALKA-SELTZER [Concomitant]

REACTIONS (1)
  - DRUG INEFFECTIVE [None]
